FAERS Safety Report 5829596-X (Version None)
Quarter: 2008Q3

REPORT INFORMATION
  Report Type: 
  Country: None (occurrence: None)
  Receive Date: 20080731
  Receipt Date: 20080722
  Transmission Date: 20090109
  Serious: Yes (Other)
  Sender: FDA-Public Use
  Company Number: US-PFIZER INC-2008062067

PATIENT
  Age: 17 Year
  Sex: Female

DRUGS (3)
  1. SERTRALINE [Suspect]
     Indication: MAJOR DEPRESSION
  2. BUPROPION HCL [Suspect]
     Indication: MAJOR DEPRESSION
  3. RISPERIDONE [Concomitant]
     Indication: HALLUCINATION
     Dosage: TEXT:0.5 MG (NR, AT BEDTIME)

REACTIONS (3)
  - CONDITION AGGRAVATED [None]
  - DRUG INEFFECTIVE [None]
  - SUICIDAL IDEATION [None]
